FAERS Safety Report 4708304-X (Version None)
Quarter: 2005Q3

REPORT INFORMATION
  Report Type: 
  Country: None (occurrence: None)
  Receive Date: 20050705
  Receipt Date: 20050705
  Transmission Date: 20060218
  Serious: Yes (Disabling)
  Sender: FDA-Public Use
  Company Number: None

PATIENT
  Sex: Female
  Weight: 50.3493 kg

DRUGS (20)
  1. AMIKACIN [Suspect]
     Indication: MYCOBACTERIUM AVIUM COMPLEX INFECTION
     Dosage: 475 MG Q8-12 H IV
     Route: 042
     Dates: start: 20050308, end: 20050620
  2. AZITHROMYCIN [Concomitant]
  3. FENTANYL [Concomitant]
  4. FLUCONAZOLE [Concomitant]
  5. LEVOFLOXACIN [Concomitant]
  6. ONDANSETON [Concomitant]
  7. GABAPENTIN [Concomitant]
  8. NALOXONE [Concomitant]
  9. ENFUVIRTIDE [Concomitant]
  10. TENOFOVIR [Concomitant]
  11. ACYCLOVIR [Concomitant]
  12. RIFABUTIN [Concomitant]
  13. LAMIVUDINE [Concomitant]
  14. STAVUIDINE [Concomitant]
  15. TPN [Concomitant]
  16. LORATADINE [Concomitant]
  17. ESCITALOPRAM OXALATE [Concomitant]
  18. DAPSONE [Concomitant]
  19. ETHAMBUTOL HCL [Concomitant]
  20. LIDOCAINE [Concomitant]

REACTIONS (1)
  - DEAFNESS BILATERAL [None]
